FAERS Safety Report 25609533 (Version 1)
Quarter: 2025Q3

REPORT INFORMATION
  Report Type: Report from Study
  Country: CA (occurrence: CA)
  Receive Date: 20250727
  Receipt Date: 20250727
  Transmission Date: 20251021
  Serious: Yes (Hospitalization)
  Sender: ABBVIE
  Company Number: CA-ABBVIE-6385173

PATIENT
  Age: 61 Year
  Sex: Male

DRUGS (2)
  1. VYALEV [Suspect]
     Active Substance: FOSCARBIDOPA\FOSLEVODOPA
     Indication: Product used for unknown indication
     Route: 058
     Dates: start: 20240508
  2. Levodopa /Carbidopa [Concomitant]
     Indication: Parkinson^s disease

REACTIONS (4)
  - Aggression [Unknown]
  - Hallucination [Unknown]
  - Delusion [Unknown]
  - Device use error [Unknown]

NARRATIVE: CASE EVENT DATE: 20250720
